FAERS Safety Report 8149444-5 (Version None)
Quarter: 2012Q1

REPORT INFORMATION
  Report Type: 
  Country: None (occurrence: None)
  Receive Date: 20120218
  Receipt Date: 20111017
  Transmission Date: 20120608
  Serious: No
  Sender: FDA-Public Use
  Company Number: US-ALLERGAN-1113640US

PATIENT
  Sex: Female

DRUGS (3)
  1. BOTULINUM TOXIN TYPE A [Suspect]
     Indication: MIGRAINE
     Dosage: UNK
     Route: 030
  2. IMITREX [Concomitant]
     Indication: MIGRAINE
     Dosage: UNK
  3. BOTULINUM TOXIN TYPE A [Suspect]
     Route: 030

REACTIONS (3)
  - MUSCULAR WEAKNESS [None]
  - MIGRAINE [None]
  - HEADACHE [None]
